FAERS Safety Report 9393424 (Version 1)
Quarter: 2013Q3

REPORT INFORMATION
  Report Type: Spontaneous
  Country: US (occurrence: None)
  Receive Date: 20130709
  Receipt Date: 20130709
  Transmission Date: 20140515
  Serious: Yes (Hospitalization)
  Sender: FDA-Public Use
  Company Number: None

PATIENT
  Age: 78 Year
  Sex: Female
  Weight: 66 kg

DRUGS (2)
  1. CARBOPLATIN [Suspect]
     Dates: start: 20130214
  2. PACLITAXEL? [Suspect]
     Dates: start: 20130214

REACTIONS (11)
  - Fatigue [None]
  - Dehydration [None]
  - Diarrhoea [None]
  - Blood culture positive [None]
  - Klebsiella infection [None]
  - Sputum culture positive [None]
  - Escherichia infection [None]
  - Chest pain [None]
  - Febrile neutropenia [None]
  - Sepsis [None]
  - Pneumonia [None]
